FAERS Safety Report 8356295-5 (Version None)
Quarter: 2012Q2

REPORT INFORMATION
  Report Type: 
  Country: None (occurrence: None)
  Receive Date: 20120514
  Receipt Date: 20110419
  Transmission Date: 20120825
  Serious: No
  Sender: FDA-Public Use
  Company Number: US-TEVA-2011001951

PATIENT
  Sex: Male
  Weight: 108.96 kg

DRUGS (1)
  1. NUVIGIL [Suspect]
     Indication: NARCOLEPSY
     Dosage: 500 MILLIGRAM;
     Route: 048
     Dates: start: 20110319

REACTIONS (2)
  - DRUG PRESCRIBING ERROR [None]
  - DIARRHOEA [None]
